FAERS Safety Report 7278653-2 (Version None)
Quarter: 2011Q1

REPORT INFORMATION
  Report Type: 
  Country: None (occurrence: None)
  Receive Date: 20110207
  Receipt Date: 20110201
  Transmission Date: 20110831
  Serious: No
  Sender: FDA-Public Use
  Company Number: US-PFIZER INC-2011023913

PATIENT
  Sex: Female

DRUGS (2)
  1. PROZAC [Suspect]
  2. PREMPRO [Suspect]
     Dosage: 0.625/2.5 MG TABLETS

REACTIONS (4)
  - MALAISE [None]
  - HOT FLUSH [None]
  - DEPRESSED MOOD [None]
  - MOOD ALTERED [None]
